FAERS Safety Report 9508428 (Version 1)
Quarter: 2013Q1

REPORT INFORMATION
  Report Type: Spontaneous
  Country: US (occurrence: None)
  Receive Date: 20130305
  Receipt Date: 20130305
  Transmission Date: 20140127
  Serious: Yes (Other)
  Sender: FDA-Public Use
  Company Number: 163-21880-12111003

PATIENT
  Age: 59 Year
  Sex: Male
  Weight: 72.58 kg

DRUGS (10)
  1. REVLIMID (LENALIDOMIDE) [Suspect]
     Indication: PLASMA CELL MYELOMA
     Dosage: 21 IN 21 D
     Route: 048
     Dates: start: 20100302
  2. ASPIRIN (ACETYLSALICYLIC ACID) [Concomitant]
  3. CALCIUM 600 + VITAMIN D (CALCIUM D3 ^STADA^) [Concomitant]
  4. DEXAMETHASONE (DEXAMETHASONE) [Concomitant]
  5. VITAMINS [Concomitant]
  6. PROTONIX [Concomitant]
  7. SIMVASTATIN (SIMVASTATIN) [Concomitant]
  8. VICODIN (VICODIN) [Concomitant]
  9. XANAX (ALPRAZOLAM) [Concomitant]
  10. ZOMETA (ZOLEDRONIC ACID) [Concomitant]

REACTIONS (2)
  - Pain in extremity [None]
  - Rash [None]
